FAERS Safety Report 4599650-1 (Version None)
Quarter: 2005Q1

REPORT INFORMATION
  Report Type: 
  Country: None (occurrence: None)
  Receive Date: 20050303
  Receipt Date: 20050217
  Transmission Date: 20050727
  Serious: No
  Sender: FDA-Public Use
  Company Number: APP200500109

PATIENT
  Sex: Male

DRUGS (4)
  1. AMPICILLIN [Suspect]
     Indication: SEPSIS
     Dosage: 500 MG (250 MG, 2 IN 1 D) INTRAVENOUS
     Route: 042
     Dates: start: 20050201, end: 20050201
  2. GENTAMICIN [Concomitant]
  3. HEPATITIS B VACCINE [Concomitant]
  4. VITAMIN K [Concomitant]

REACTIONS (1)
  - CARDIAC ARREST NEONATAL [None]
